FAERS Safety Report 10569582 (Version 2)
Quarter: 2014Q4

REPORT INFORMATION
  Report Type: Report from Study
  Country: GB (occurrence: GB)
  Receive Date: 20141106
  Receipt Date: 20141126
  Transmission Date: 20150529
  Serious: Yes (Hospitalization, Other)
  Sender: FDA-Public Use
  Company Number: PHFR2014GB007505

PATIENT
  Age: 44 Year
  Sex: Female

DRUGS (16)
  1. CARBAMAZEPINE. [Suspect]
     Active Substance: CARBAMAZEPINE
     Indication: PRODUCT USED FOR UNKNOWN INDICATION
     Dosage: UNK
     Route: 065
  2. DIAZEPAM. [Concomitant]
     Active Substance: DIAZEPAM
     Indication: PRODUCT USED FOR UNKNOWN INDICATION
     Route: 065
  3. METHYLPREDISOLONE [Concomitant]
     Active Substance: METHYLPREDNISOLONE
     Indication: PRODUCT USED FOR UNKNOWN INDICATION
     Dosage: 500 MG, QD
     Route: 048
  4. BACLOFEN. [Suspect]
     Active Substance: BACLOFEN
     Indication: MULTIPLE SCLEROSIS
     Dosage: 10 MG, QD (MANE)
     Route: 065
     Dates: start: 20080430
  5. CARBAMAZEPINE. [Suspect]
     Active Substance: CARBAMAZEPINE
     Dosage: 400 MG, QD
     Route: 065
  6. COPAXONE [Concomitant]
     Active Substance: GLATIRAMER ACETATE
     Indication: PRODUCT USED FOR UNKNOWN INDICATION
     Dosage: UNK
     Route: 065
  7. AMANTADINE [Concomitant]
     Active Substance: AMANTADINE
     Indication: PRODUCT USED FOR UNKNOWN INDICATION
     Dosage: UNK
     Route: 065
  8. FLUOXETINE [Concomitant]
     Active Substance: FLUOXETINE\FLUOXETINE HYDROCHLORIDE
     Indication: PRODUCT USED FOR UNKNOWN INDICATION
     Dosage: UNK
     Route: 065
  9. GLATIRAMER ACETATE. [Concomitant]
     Active Substance: GLATIRAMER ACETATE
     Indication: PRODUCT USED FOR UNKNOWN INDICATION
     Dosage: UNK
     Route: 065
  10. GABAPENTIN. [Concomitant]
     Active Substance: GABAPENTIN
     Indication: PRODUCT USED FOR UNKNOWN INDICATION
     Dosage: UNK
     Route: 065
  11. BACLOFEN. [Suspect]
     Active Substance: BACLOFEN
     Indication: MUSCLE SPASTICITY
     Dosage: 10 MG, QD (MANE)
     Route: 065
  12. CARBAMAZEPINE. [Suspect]
     Active Substance: CARBAMAZEPINE
     Dosage: 700 MG, QD
     Route: 065
  13. CARBAMAZEPINE. [Suspect]
     Active Substance: CARBAMAZEPINE
     Dosage: 200 MG, BID
     Route: 065
  14. CARBAMAZEPINE. [Suspect]
     Active Substance: CARBAMAZEPINE
     Dosage: 1000 MG, (400MG AM, 200MG MIDDAY AND 400MG PM)
     Route: 065
  15. BACLOFEN. [Suspect]
     Active Substance: BACLOFEN
     Indication: LIMB DISCOMFORT
     Dosage: 5 MG, TID
     Route: 065
  16. OXYBUTYNIN [Concomitant]
     Active Substance: OXYBUTYNIN
     Indication: PRODUCT USED FOR UNKNOWN INDICATION
     Dosage: UNK
     Route: 065

REACTIONS (30)
  - Respiratory arrest [Recovering/Resolving]
  - Loss of consciousness [Recovering/Resolving]
  - Autism spectrum disorder [Recovering/Resolving]
  - Confusional state [Unknown]
  - Conjunctival haemorrhage [Recovering/Resolving]
  - Fall [Recovering/Resolving]
  - Head injury [Recovering/Resolving]
  - Mobility decreased [Unknown]
  - Muscle tightness [Recovering/Resolving]
  - Bladder dysfunction [Unknown]
  - Generalised tonic-clonic seizure [Recovering/Resolving]
  - Pain in extremity [Unknown]
  - Haemorrhage [Recovering/Resolving]
  - Abasia [Recovering/Resolving]
  - Clonus [Unknown]
  - Ataxia [Unknown]
  - Cyanosis [Recovering/Resolving]
  - Progressive relapsing multiple sclerosis [Recovering/Resolving]
  - Asthenia [Unknown]
  - Urinary incontinence [Recovering/Resolving]
  - Somnolence [Unknown]
  - Aphasia [Recovering/Resolving]
  - Feeling abnormal [Recovering/Resolving]
  - Dyskinesia [Unknown]
  - Muscle twitching [Unknown]
  - Dizziness [Recovering/Resolving]
  - Muscle spasms [Unknown]
  - Hemiparesis [Unknown]
  - Pain [Unknown]
  - Muscular weakness [Recovering/Resolving]

NARRATIVE: CASE EVENT DATE: 200903
